FAERS Safety Report 7522405-2 (Version None)
Quarter: 2011Q2

REPORT INFORMATION
  Report Type: 
  Country: None (occurrence: None)
  Receive Date: 20110603
  Receipt Date: 20110520
  Transmission Date: 20111010
  Serious: Yes (Other)
  Sender: FDA-Public Use
  Company Number: CA-JNJFOC-20100607392

PATIENT
  Sex: Male
  Weight: 64 kg

DRUGS (5)
  1. FLOMAX [Concomitant]
     Route: 065
  2. CALCIUM CARBONATE [Concomitant]
     Route: 065
  3. REMICADE [Suspect]
     Indication: CROHN'S DISEASE
     Route: 042
     Dates: start: 20040101
  4. MICARDIS [Concomitant]
     Indication: HYPERTENSION
     Route: 065
  5. METHOTREXATE [Concomitant]
     Route: 065

REACTIONS (1)
  - NEPHROLITHIASIS [None]
